FAERS Safety Report 10010361 (Version 2)
Quarter: 2014Q2

REPORT INFORMATION
  Report Type: Spontaneous
  Country: US (occurrence: US)
  Receive Date: 20140314
  Receipt Date: 20140401
  Transmission Date: 20141212
  Serious: Yes (Death)
  Sender: FDA-Public Use
  Company Number: US-BIOGENIDEC-2014BI020314

PATIENT
  Age: 57 Year
  Sex: Female

DRUGS (31)
  1. TYSABRI [Suspect]
     Indication: MULTIPLE SCLEROSIS
     Route: 042
     Dates: start: 20061010
  2. AVONEX [Concomitant]
     Indication: MULTIPLE SCLEROSIS
     Route: 030
  3. OMEPRAZOLE [Concomitant]
  4. AMITRIPTYLINE [Concomitant]
  5. MIRTAZAPINE [Concomitant]
  6. ZYPREXA [Concomitant]
  7. LAMICTAL [Concomitant]
  8. CILOSTAZOL [Concomitant]
  9. MOBIC [Concomitant]
  10. XOPENEX HFA [Concomitant]
  11. REGLAN [Concomitant]
  12. ALBUTEROL SULFATE [Concomitant]
  13. MAGNESIUM [Concomitant]
  14. ZANTAC [Concomitant]
  15. LYSINE [Concomitant]
  16. VITAMIN D3 [Concomitant]
  17. TIZANIDINE [Concomitant]
  18. LANOXIN [Concomitant]
  19. XANAX [Concomitant]
  20. AMBIEN [Concomitant]
  21. SAVELLA [Concomitant]
  22. HYDROCODONE ACETAMINOPHEN [Concomitant]
  23. SALAGEN [Concomitant]
  24. CALCIUM AND VITAMIN D3 [Concomitant]
  25. OMEGA 3 FATTY ACIDS [Concomitant]
  26. EFFER-K [Concomitant]
  27. ESTRADIOL [Concomitant]
  28. BENADRYL [Concomitant]
  29. PLAQUENIL [Concomitant]
  30. GUAIFENESIN [Concomitant]
  31. PROMETHAZINE-CODEINE [Concomitant]

REACTIONS (3)
  - Death [Fatal]
  - Cervical vertebral fracture [Fatal]
  - Fall [Fatal]
